FAERS Safety Report 24581393 (Version 1)
Quarter: 2024Q4

REPORT INFORMATION
  Report Type: Report from Study
  Country: US (occurrence: US)
  Receive Date: 20241105
  Receipt Date: 20241105
  Transmission Date: 20250115
  Serious: Yes (Other)
  Sender: MERCK
  Company Number: US-009507513-2405USA009643

PATIENT
  Sex: Female
  Weight: 77.098 kg

DRUGS (18)
  1. SOTATERCEPT [Suspect]
     Active Substance: SOTATERCEPT
     Indication: Pulmonary arterial hypertension
     Dosage: 0.5 MILLILITER, Q 21 DAYS (Q3W), STRENGTH: 45 MG KIT
     Route: 058
     Dates: start: 20240430
  2. WINREVAIR [Suspect]
     Active Substance: SOTATERCEPT-CSRK
     Indication: Pulmonary arterial hypertension
     Dosage: 1.1 MILLILITER,  Q 21 DAYS (Q3W), STRENGTH: 60 MG KIT
     Route: 058
     Dates: start: 2024
  3. REMODULIN [Suspect]
     Active Substance: TREPROSTINIL
     Indication: Pulmonary arterial hypertension
     Dosage: 0.0803 MICROGRAM PER KILOGRAM, CONTINUOUS
     Route: 058
     Dates: start: 20170119
  4. TRACLEER [Concomitant]
     Active Substance: BOSENTAN
  5. ADCIRCA [Concomitant]
     Active Substance: TADALAFIL
  6. OMEPRAZOLE [Concomitant]
     Active Substance: OMEPRAZOLE
  7. POTASSIUM CHLORIDE [Concomitant]
     Active Substance: POTASSIUM CHLORIDE
  8. ACETAMINOPHEN\HYDROCODONE [Concomitant]
     Active Substance: ACETAMINOPHEN\HYDROCODONE
  9. MELATONIN [Concomitant]
     Active Substance: MELATONIN
  10. SPIRONOLACTONE [Concomitant]
     Active Substance: SPIRONOLACTONE
  11. FOLIC ACID [Concomitant]
     Active Substance: FOLIC ACID
  12. ALBUTEROL SULFATE [Concomitant]
     Active Substance: ALBUTEROL SULFATE
  13. VITAMIN D3 [Concomitant]
     Active Substance: CHOLECALCIFEROL
  14. OXYGEN [Concomitant]
     Active Substance: OXYGEN
  15. DIGOXIN [Concomitant]
     Active Substance: DIGOXIN
  16. MAGNESIUM [Concomitant]
     Active Substance: MAGNESIUM
  17. ZOFRAN [Concomitant]
     Active Substance: ONDANSETRON HYDROCHLORIDE
  18. VITAMIN C [Concomitant]
     Active Substance: ASCORBIC ACID

REACTIONS (3)
  - Colon cancer [Unknown]
  - Nausea [Unknown]
  - Injection site bruising [Unknown]

NARRATIVE: CASE EVENT DATE: 20240101
